FAERS Safety Report 4726846-8 (Version None)
Quarter: 2005Q3

REPORT INFORMATION
  Report Type: 
  Country: None (occurrence: None)
  Receive Date: 20050726
  Receipt Date: 20050714
  Transmission Date: 20060218
  Serious: Yes (Hospitalization)
  Sender: FDA-Public Use
  Company Number: 2005-130576-NL

PATIENT
  Age: 45 Year
  Sex: Female

DRUGS (2)
  1. MIRTAZAPINE [Suspect]
     Indication: MAJOR DEPRESSION
     Dosage: DF, M 30 MG, ORAL
     Route: 048
     Dates: start: 20010117, end: 20010901
  2. MIRTAZAPINE [Suspect]
     Indication: MAJOR DEPRESSION
     Dosage: DF, M 30 MG, ORAL
     Route: 048
     Dates: start: 20050530

REACTIONS (2)
  - DEPRESSION [None]
  - OVARIAN CYST [None]
